FAERS Safety Report 5335983-9 (Version None)
Quarter: 2007Q2

REPORT INFORMATION
  Report Type: 
  Country: None (occurrence: None)
  Receive Date: 20070302
  Receipt Date: 20060217
  Transmission Date: 20071010
  Serious: Yes (Hospitalization, Other)
  Sender: FDA-Public Use
  Company Number: 2113

PATIENT
  Age: 78 Year
  Sex: Male
  Weight: 68 kg

DRUGS (2)
  1. TARGRETIN [Suspect]
     Indication: MYCOSIS FUNGOIDES
     Dosage: 525 MG DAILY PO
     Route: 048
     Dates: start: 20060203
  2. PREDNISOLONE [Concomitant]

REACTIONS (1)
  - THROMBOPHLEBITIS [None]
